FAERS Safety Report 19615234 (Version 1)
Quarter: 2021Q3

REPORT INFORMATION
  Report Type: Spontaneous
  Country: US (occurrence: US)
  Receive Date: 20210727
  Receipt Date: 20210727
  Transmission Date: 20211014
  Serious: Yes (Hospitalization)
  Sender: FDA-Public Use
  Company Number: US-GLAXOSMITHKLINE-US2021159309

PATIENT
  Age: 67 Year
  Sex: Female

DRUGS (1)
  1. SOTROVIMAB AUTHORIZED UNDER INTERIM ORDER/EMERGENCY USE FOR THE TREATM [Suspect]
     Active Substance: SOTROVIMAB
     Indication: COVID-19
     Dosage: 500 MG
     Route: 042
     Dates: start: 20210721

REACTIONS (2)
  - COVID-19 [Not Recovered/Not Resolved]
  - Oxygen therapy [Unknown]

NARRATIVE: CASE EVENT DATE: 20210722
